FAERS Safety Report 5045865-8 (Version None)
Quarter: 2006Q3

REPORT INFORMATION
  Report Type: 
  Country: None (occurrence: None)
  Receive Date: 20060710
  Receipt Date: 20060628
  Transmission Date: 20061208
  Serious: Yes (Hospitalization, Other)
  Sender: FDA-Public Use
  Company Number: 2006AP03008

PATIENT
  Age: 22 Year
  Sex: Female

DRUGS (6)
  1. FOSCAVIR [Suspect]
     Indication: HUMAN HERPESVIRUS 6 INFECTION
     Route: 042
     Dates: start: 20060616
  2. PROGRAF [Suspect]
     Route: 048
     Dates: start: 20060622
  3. ITRACONAZOLE [Concomitant]
     Route: 048
     Dates: start: 20060610
  4. ZOVIRAX [Concomitant]
     Route: 048
     Dates: start: 20060610
  5. OZEX [Concomitant]
     Route: 048
     Dates: start: 20060613, end: 20060617
  6. NEUTROGIN [Concomitant]
     Route: 042
     Dates: start: 20060618, end: 20060624

REACTIONS (4)
  - HYPOKALAEMIA [None]
  - PYREXIA [None]
  - RENAL IMPAIRMENT [None]
  - TONGUE PARALYSIS [None]
